FAERS Safety Report 6148471-7 (Version None)
Quarter: 2009Q2

REPORT INFORMATION
  Report Type: 
  Country: None (occurrence: None)
  Receive Date: 20090406
  Receipt Date: 20090406
  Transmission Date: 20091009
  Serious: Yes (Other)
  Sender: FDA-Public Use
  Company Number: None

PATIENT
  Age: 67 Year
  Sex: Female
  Weight: 83.9154 kg

DRUGS (3)
  1. TOPOTECAN [Suspect]
     Indication: BREAST DISORDER
     Dosage: 450 MG EVERY 3 WEEKS IV DRIP
     Route: 041
     Dates: start: 20090314, end: 20090402
  2. TOPOTECAN [Suspect]
     Indication: OVARIAN DISORDER
     Dosage: 450 MG EVERY 3 WEEKS IV DRIP
     Route: 041
     Dates: start: 20090314, end: 20090402
  3. CARBOPLATIN [Suspect]

REACTIONS (2)
  - NAUSEA [None]
  - VOMITING [None]
